FAERS Safety Report 10101133 (Version 3)
Quarter: 2014Q2

REPORT INFORMATION
  Report Type: Report from Study
  Country: CA (occurrence: CA)
  Receive Date: 20140424
  Receipt Date: 20140610
  Transmission Date: 20141212
  Serious: Yes (Other)
  Sender: FDA-Public Use
  Company Number: CA-BRISTOL-MYERS SQUIBB COMPANY-20629788

PATIENT
  Age: 59 Year
  Sex: Female

DRUGS (10)
  1. ABATACEPT SUBQ INJECTION 125MG/ML [Suspect]
     Indication: RHEUMATOID ARTHRITIS
     Dosage: 1 DF=125, 2ND INJ 09APR14?JUN-2014
     Route: 058
     Dates: start: 20140331
  2. ARAVA [Concomitant]
  3. M-ESLON [Concomitant]
  4. STATEX [Concomitant]
  5. SYNTHROID [Concomitant]
  6. VENTOLIN [Concomitant]
  7. EPIPEN [Concomitant]
  8. AZOPT [Concomitant]
  9. IRON [Concomitant]
  10. GRAVOL [Concomitant]
     Dosage: SUPPOSITORIES

REACTIONS (14)
  - Headache [Unknown]
  - Fatigue [Unknown]
  - Eye irritation [Unknown]
  - Nausea [Unknown]
  - Vomiting [Unknown]
  - Abdominal pain [Unknown]
  - Chills [Unknown]
  - Hot flush [Unknown]
  - Diarrhoea [Unknown]
  - Haematochezia [Unknown]
  - Hyperhidrosis [Unknown]
  - Drug ineffective [Unknown]
  - Drug hypersensitivity [Unknown]
  - Rhinorrhoea [Unknown]
